FAERS Safety Report 8169433-4 (Version None)
Quarter: 2012Q1

REPORT INFORMATION
  Report Type: 
  Country: None (occurrence: None)
  Receive Date: 20120222
  Receipt Date: 20120213
  Transmission Date: 20120608
  Serious: Yes (Hospitalization)
  Sender: FDA-Public Use
  Company Number: 2012000024

PATIENT
  Age: 78 Year
  Sex: Male

DRUGS (4)
  1. ACTONEL [Concomitant]
  2. ANTACAL (AMLODIPINE BESILATE) [Concomitant]
  3. TERAPROST (TERAZOSIN HYDROCHLORIDE) [Concomitant]
  4. ACEON [Suspect]
     Indication: HYPERTENSION
     Dosage: 10 MG,QD, ORAL
     Route: 048
     Dates: start: 19920101

REACTIONS (3)
  - DIZZINESS [None]
  - HYPOKALAEMIA [None]
  - BLOOD PRESSURE INCREASED [None]
